FAERS Safety Report 23394273 (Version 3)
Quarter: 2024Q3

REPORT INFORMATION
  Report Type: Report from Study
  Country: IN (occurrence: IN)
  Receive Date: 20240111
  Receipt Date: 20240711
  Transmission Date: 20241017
  Serious: Yes (Other)
  Sender: TAKEDA
  Company Number: IN-TAKEDA-2023TUS124956

PATIENT
  Sex: Female

DRUGS (1)
  1. VEDOLIZUMAB [Suspect]
     Active Substance: VEDOLIZUMAB
     Indication: Colitis ulcerative
     Dosage: 300 MILLIGRAM
     Route: 042

REACTIONS (10)
  - Haematochezia [Unknown]
  - Colitis ulcerative [Unknown]
  - Hyperchlorhydria [Unknown]
  - Steroid dependence [Unknown]
  - Mucous stools [Unknown]
  - Weight abnormal [Unknown]
  - Inappropriate schedule of product administration [Unknown]
  - General physical health deterioration [Unknown]
  - Decreased appetite [Unknown]
  - Headache [Unknown]
